FAERS Safety Report 5596420-2 (Version None)
Quarter: 2007Q4

REPORT INFORMATION
  Report Type: 
  Country: None (occurrence: None)
  Receive Date: 20071218
  Receipt Date: 20070712
  Transmission Date: 20080405
  Serious: Yes (Other)
  Sender: FDA-Public Use
  Company Number: 2007058169

PATIENT
  Age: 56 Year
  Sex: Female
  Weight: 71.2 kg

DRUGS (6)
  1. BEXTRA [Suspect]
     Indication: ARTHRITIS
     Dosage: 20 MG (10 MG, 2 IN 1 D)
  2. CELEBREX [Suspect]
     Indication: ARTHRITIS
     Dosage: 200 MG (100 MG, 2 IN 1 D)
  3. ADVIL [Concomitant]
  4. ACETAMINOPHEN [Concomitant]
  5. ULTRAM [Concomitant]
  6. VIOXX [Concomitant]

REACTIONS (1)
  - CORONARY ARTERY DISEASE [None]
